FAERS Safety Report 18207689 (Version 2)
Quarter: 2020Q4

REPORT INFORMATION
  Report Type: Spontaneous
  Country: US (occurrence: US)
  Receive Date: 20200828
  Receipt Date: 20201118
  Transmission Date: 20210113
  Serious: Yes (Other)
  Sender: FDA-Public Use
  Company Number: US-PFIZER INC-2020332210

PATIENT
  Age: 63 Year
  Sex: Female

DRUGS (2)
  1. XELJANZ XR [Suspect]
     Active Substance: TOFACITINIB CITRATE
     Indication: RHEUMATOID ARTHRITIS
     Dosage: 11 MG, DAILY
     Route: 048
     Dates: start: 202007
  2. NAPROSYN [Suspect]
     Active Substance: NAPROXEN
     Dosage: UNK

REACTIONS (4)
  - COVID-19 [Not Recovered/Not Resolved]
  - Rheumatoid arthritis [Not Recovered/Not Resolved]
  - Hepatic enzyme increased [Unknown]
  - Insomnia [Unknown]

NARRATIVE: CASE EVENT DATE: 2020
